FAERS Safety Report 10078873 (Version 1)
Quarter: 2014Q2

REPORT INFORMATION
  Report Type: Spontaneous
  Country: NL (occurrence: None)
  Receive Date: 20140411
  Receipt Date: 20140411
  Transmission Date: 20141212
  Serious: Yes (Hospitalization, Other)
  Sender: FDA-Public Use
  Company Number: NL-015186

PATIENT
  Sex: Female
  Weight: 1 kg

DRUGS (3)
  1. DESMOPRESSIN [Suspect]
     Indication: DIABETES INSIPIDUS
     Dosage: LX, ADMINISTERED ON THE 3RD POSTNATAL DAY NASAL), (0.05 UG LX, ADMINISTERED ON THE 6TH POSTNATAL DAY NASAL)
  2. PENCILLIN [Concomitant]
  3. GENTAMYCIN BIOCHEMIE [Concomitant]

REACTIONS (3)
  - Blood sodium abnormal [None]
  - Oliguria [None]
  - Anuria [None]
